FAERS Safety Report 18712298 (Version 2)
Quarter: 2021Q1

REPORT INFORMATION
  Report Type: Spontaneous
  Country: US (occurrence: US)
  Receive Date: 20210107
  Receipt Date: 20210114
  Transmission Date: 20210419
  Serious: Yes (Death, Hospitalization, Other)
  Sender: FDA-Public Use
  Company Number: US-PFIZER INC-2021005592

PATIENT
  Age: 57 Year
  Sex: Female

DRUGS (11)
  1. TRAZODONE [Suspect]
     Active Substance: TRAZODONE HYDROCHLORIDE
     Dosage: UNK (INGST)
     Route: 048
     Dates: start: 2019
  2. TIZANIDINE. [Suspect]
     Active Substance: TIZANIDINE
     Dosage: UNK (INGST)
     Route: 048
     Dates: start: 2019
  3. FLECAINIDE [Suspect]
     Active Substance: FLECAINIDE
     Dosage: UNK (INGST)
     Route: 048
     Dates: start: 2019
  4. OXYCODONE [Suspect]
     Active Substance: OXYCODONE
     Dosage: UNK (INGST)
     Route: 048
     Dates: start: 2019
  5. ESCITALOPRAM [Suspect]
     Active Substance: ESCITALOPRAM OXALATE
     Dosage: UNK (INGST)
     Route: 048
     Dates: start: 2019
  6. GABAPENTIN. [Suspect]
     Active Substance: GABAPENTIN
     Dosage: UNK (INGST)
     Route: 048
     Dates: start: 2019
  7. POTASSIUM CHLORIDE. [Suspect]
     Active Substance: POTASSIUM CHLORIDE
     Dosage: UNK (INGST)
     Route: 048
     Dates: start: 2019
  8. DIAZEPAM. [Suspect]
     Active Substance: DIAZEPAM
     Dosage: UNK (INGST)
     Route: 048
     Dates: start: 2019
  9. METFORMIN [Suspect]
     Active Substance: METFORMIN HYDROCHLORIDE
     Dosage: UNK (INGST)
     Route: 048
     Dates: start: 2019
  10. APIXABAN [Suspect]
     Active Substance: APIXABAN
     Dosage: UNK (INGST)
     Route: 048
     Dates: start: 2019
  11. MAGNESIUM SULFATE. [Suspect]
     Active Substance: MAGNESIUM SULFATE
     Dosage: UNK (INGST)
     Route: 048
     Dates: start: 2019

REACTIONS (3)
  - Cardiac arrest [Fatal]
  - Medication error [Fatal]
  - Respiratory arrest [Fatal]

NARRATIVE: CASE EVENT DATE: 2019
